FAERS Safety Report 13632193 (Version 1)
Quarter: 2017Q2

REPORT INFORMATION
  Report Type: Spontaneous
  Country: US (occurrence: US)
  Receive Date: 20170531
  Receipt Date: 20170531
  Transmission Date: 20170830
  Serious: No
  Sender: FDA-Public Use
  Company Number: US-ASTELLAS-1445896

PATIENT
  Age: 81 Year
  Sex: Female
  Weight: 56.3 kg

DRUGS (2)
  1. TARCEVA [Suspect]
     Active Substance: ERLOTINIB HYDROCHLORIDE
     Indication: LUNG NEOPLASM MALIGNANT
     Route: 048
     Dates: start: 20140802
  2. TARCEVA [Suspect]
     Active Substance: ERLOTINIB HYDROCHLORIDE
     Dosage: DAILY
     Route: 048
     Dates: start: 20140801

REACTIONS (4)
  - Faeces soft [Unknown]
  - Tongue eruption [Not Recovered/Not Resolved]
  - Tongue exfoliation [Not Recovered/Not Resolved]
  - Swollen tongue [Unknown]

NARRATIVE: CASE EVENT DATE: 20140804
